FAERS Safety Report 8553962-5 (Version None)
Quarter: 2012Q3

REPORT INFORMATION
  Report Type: 
  Country: None (occurrence: None)
  Receive Date: 20120731
  Receipt Date: 20120723
  Transmission Date: 20120928
  Serious: Yes (Hospitalization, Disabling, Other)
  Sender: FDA-Public Use
  Company Number: US-009507513-1205USA03112

PATIENT

DRUGS (9)
  1. PRINIVIL [Suspect]
     Dosage: 20 MG, QD
     Route: 048
  2. JANUVIA [Suspect]
     Indication: TYPE 2 DIABETES MELLITUS
     Dosage: UNK
     Route: 048
     Dates: start: 20110805, end: 20120101
  3. MEVACOR [Suspect]
     Dosage: 20 MG, QD
     Route: 048
  4. JANUVIA [Suspect]
     Dosage: 100 MG, QD
     Route: 048
     Dates: start: 20120312, end: 20120512
  5. GLUCOVANCE [Concomitant]
     Dosage: UNK
  6. ATIVAN [Concomitant]
     Indication: ANXIETY
     Dosage: 0.5 MG, Q6H
  7. ATENOLOL [Concomitant]
     Dosage: 50 MG, QD
  8. ASPIRIN [Concomitant]
     Dosage: 325 MG, QD
  9. PRILOSEC [Suspect]
     Route: 048

REACTIONS (16)
  - DIABETES MELLITUS [None]
  - CHOLELITHIASIS [None]
  - BLOOD UREA INCREASED [None]
  - ATELECTASIS [None]
  - PERICARDIAL EFFUSION [None]
  - AORTIC ARTERIOSCLEROSIS [None]
  - PANCREATITIS [None]
  - HEPATIC STEATOSIS [None]
  - PLEURAL EFFUSION [None]
  - PROSTATOMEGALY [None]
  - ABDOMINAL MASS [None]
  - PSEUDOCYST [None]
  - HAEMOGLOBIN DECREASED [None]
  - PANCREATIC MASS [None]
  - TREATMENT NONCOMPLIANCE [None]
  - HAEMATOCRIT DECREASED [None]
